FAERS Safety Report 15110895 (Version 1)
Quarter: 2018Q2

REPORT INFORMATION
  Report Type: Spontaneous
  Country: US (occurrence: US)
  Receive Date: 20180612
  Receipt Date: 20180612
  Transmission Date: 20180711
  Serious: Yes (Other)
  Sender: FDA-Public Use
  Company Number: None

PATIENT
  Age: 71 Year
  Sex: Male
  Weight: 108 kg

DRUGS (10)
  1. ZYTIGA [Suspect]
     Active Substance: ABIRATERONE ACETATE
     Indication: PROSTATE CANCER
     Route: 048
     Dates: start: 20180312, end: 20180611
  2. ELIGARD [Concomitant]
     Active Substance: LEUPROLIDE ACETATE
  3. VITMAIN D [Concomitant]
  4. FLECAINIDE [Concomitant]
     Active Substance: FLECAINIDE
  5. FLUOROURACIL. [Concomitant]
     Active Substance: FLUOROURACIL
  6. VITAMIN B COMPLEX [Concomitant]
     Active Substance: CYANOCOBALAMIN\DEXPANTHENOL\NIACINAMIDE\PYRIDOXINE HYDROCHLORIDE\RIBOFLAVIN 5^-PHOSPHATE SODIUM\THIAMINE HYDROCHLORIDE\VITAMIN B COMPLEX
  7. PREDNISONE. [Concomitant]
     Active Substance: PREDNISONE
  8. PRADAXA [Concomitant]
     Active Substance: DABIGATRAN ETEXILATE MESYLATE
  9. BISOPROLOL [Concomitant]
     Active Substance: BISOPROLOL
  10. CALCIUM [Concomitant]
     Active Substance: CALCIUM

REACTIONS (2)
  - Dyspnoea [None]
  - Syncope [None]
